FAERS Safety Report 19928885 (Version 1)
Quarter: 2021Q4

REPORT INFORMATION
  Report Type: Spontaneous
  Country: CA (occurrence: CA)
  Receive Date: 20211007
  Receipt Date: 20211007
  Transmission Date: 20220303
  Serious: Yes (Life-Threatening)
  Sender: FDA-Public Use
  Company Number: CA-TEVA-2021-CA-1961870

PATIENT
  Age: 72 Year
  Sex: Female
  Weight: 48 kg

DRUGS (2)
  1. TOPOTECAN HYDROCHLORIDE [Suspect]
     Active Substance: TOPOTECAN HYDROCHLORIDE
     Indication: Lung neoplasm
     Dosage: 2 MILLIGRAM DAILY;
     Route: 042
  2. TECENTRIQ [Concomitant]
     Active Substance: ATEZOLIZUMAB
     Route: 065

REACTIONS (3)
  - Colitis [Unknown]
  - Cystitis escherichia [Unknown]
  - Febrile neutropenia [Unknown]
